FAERS Safety Report 6254995-4 (Version None)
Quarter: 2009Q3

REPORT INFORMATION
  Report Type: 
  Country: None (occurrence: None)
  Receive Date: 20090702
  Receipt Date: 20090625
  Transmission Date: 20100115
  Serious: Yes (Hospitalization)
  Sender: FDA-Public Use
  Company Number: US-ELI_LILLY_AND_COMPANY-US200906002089

PATIENT
  Age: 50 Year
  Sex: Female
  Weight: 76.644 kg

DRUGS (6)
  1. BYETTA [Suspect]
     Indication: TYPE 2 DIABETES MELLITUS
     Dosage: 5 UG, UNKNOWN
     Route: 058
     Dates: start: 20090413, end: 20090526
  2. AVANDIA [Concomitant]
     Dosage: UNK, UNKNOWN
     Route: 065
  3. PROZAC [Concomitant]
     Dosage: UNK, UNKNOWN
     Route: 065
  4. PRAVASTATIN [Concomitant]
     Dosage: UNK, UNKNOWN
     Route: 065
  5. PROTONIX [Concomitant]
     Dosage: UNK, UNKNOWN
     Route: 065
  6. ZESTRIL [Concomitant]
     Dosage: UNK, UNKNOWN
     Route: 065

REACTIONS (3)
  - CHOLELITHIASIS [None]
  - PANCREATITIS [None]
  - WEIGHT DECREASED [None]
